FAERS Safety Report 13337247 (Version 2)
Quarter: 2017Q2

REPORT INFORMATION
  Report Type: Spontaneous
  Country: US (occurrence: US)
  Receive Date: 20170315
  Receipt Date: 20170404
  Transmission Date: 20170830
  Serious: No
  Sender: FDA-Public Use
  Company Number: US-PFIZER INC-2017108412

PATIENT
  Age: 81 Year
  Sex: Female
  Weight: 40 kg

DRUGS (5)
  1. IBRANCE [Suspect]
     Active Substance: PALBOCICLIB
     Indication: BREAST CANCER
     Dosage: 125 MG, 1X/DAY (IN THE MORNING WITH FOOD)
     Route: 048
     Dates: start: 201606, end: 20170206
  2. METOPROLOL. [Concomitant]
     Active Substance: METOPROLOL
     Indication: PALPITATIONS
     Dosage: 25 MG, UNK
     Dates: start: 201605
  3. LOSARTAN. [Concomitant]
     Active Substance: LOSARTAN
     Indication: BLOOD PRESSURE MEASUREMENT
     Dosage: 50 MG, UNK
     Dates: start: 201605
  4. IBRANCE [Suspect]
     Active Substance: PALBOCICLIB
     Dosage: 100 MG, UNK
     Dates: start: 20170323
  5. LETROZOLE. [Concomitant]
     Active Substance: LETROZOLE
     Indication: NEOPLASM MALIGNANT
     Dosage: 2.5 MG, UNK
     Dates: start: 201603

REACTIONS (9)
  - Feeling abnormal [Unknown]
  - Rash [Recovered/Resolved]
  - Agitation [Recovered/Resolved]
  - Haemoptysis [Unknown]
  - Insomnia [Recovering/Resolving]
  - Hypertension [Unknown]
  - Epistaxis [Recovered/Resolved]
  - Nervousness [Recovering/Resolving]
  - Therapeutic response unexpected [Unknown]

NARRATIVE: CASE EVENT DATE: 201607
